FAERS Safety Report 4650964-6 (Version None)
Quarter: 2005Q2

REPORT INFORMATION
  Report Type: 
  Country: None (occurrence: None)
  Receive Date: 20050429
  Receipt Date: 20050401
  Transmission Date: 20051028
  Serious: Yes (Other)
  Sender: FDA-Public Use
  Company Number: ENTC2005-0098

PATIENT
  Age: 75 Year
  Sex: Male

DRUGS (13)
  1. STALEVO 100 [Suspect]
     Indication: PARKINSON'S DISEASE
     Dosage: 250 MG
     Route: 048
     Dates: start: 20041001
  2. SERTRALINE HCL [Suspect]
     Dosage: 50 MG BID
     Dates: start: 20041119
  3. ASAFLOW [Concomitant]
  4. CORUNO (MOLSIDOMINE) [Concomitant]
  5. PERMAX [Concomitant]
  6. REQUIP [Concomitant]
  7. TEMESTA [Concomitant]
  8. ZANTAC [Concomitant]
  9. VITAMIN B-12 [Concomitant]
  10. MOVICOL [Concomitant]
  11. MACROGOL [Concomitant]
  12. SODIUM CHLORIDE [Concomitant]
  13. SODIUM HYDROGEN CARBONATE [Concomitant]

REACTIONS (2)
  - DERMATITIS EXFOLIATIVE [None]
  - PEMPHIGOID [None]
